FAERS Safety Report 14425134 (Version 1)
Quarter: 2018Q1

REPORT INFORMATION
  Report Type: Spontaneous
  Country: US (occurrence: US)
  Receive Date: 20180123
  Receipt Date: 20180123
  Transmission Date: 20180509
  Serious: Yes (Hospitalization, Other)
  Sender: FDA-Public Use
  Company Number: US-JNJFOC-20180124657

PATIENT
  Sex: Male

DRUGS (1)
  1. XARELTO [Suspect]
     Active Substance: RIVAROXABAN
     Indication: PRODUCT USED FOR UNKNOWN INDICATION
     Route: 048

REACTIONS (8)
  - Ulcer haemorrhage [Unknown]
  - Hepatic lesion [Unknown]
  - Bile duct stenosis [Unknown]
  - Hepatic cirrhosis [Unknown]
  - Chronic hepatitis C [Unknown]
  - Ascites [Unknown]
  - Renal disorder [Unknown]
  - Peripheral artery stenosis [Unknown]
